FAERS Safety Report 9062036 (Version 1)
Quarter: 2013Q1

REPORT INFORMATION
  Report Type: Report from Study
  Country: US (occurrence: US)
  Receive Date: 20130128
  Receipt Date: 20130128
  Transmission Date: 20140127
  Serious: Yes (Other)
  Sender: FDA-Public Use
  Company Number: US-JNJFOC-20130110500

PATIENT
  Age: 70 None
  Sex: Female
  Weight: 69.85 kg

DRUGS (5)
  1. REMICADE [Suspect]
     Indication: ARTHRITIS
     Route: 042
     Dates: start: 201112
  2. FOLIC ACID [Concomitant]
     Indication: VITAMIN SUPPLEMENTATION
     Route: 048
  3. LEFLUNOMIDE [Concomitant]
     Indication: PRODUCT USED FOR UNKNOWN INDICATION
     Dosage: 1 TAB IN MORNING
     Route: 048
  4. ZINC [Concomitant]
     Indication: MINERAL SUPPLEMENTATION
     Route: 048
  5. ALL OTHER THERAPEUTICS [Concomitant]
     Indication: BLOOD PRESSURE
     Dosage: 1 TAB AT BED TIME
     Route: 048

REACTIONS (8)
  - Pulmonary mass [Not Recovered/Not Resolved]
  - Restless legs syndrome [Not Recovered/Not Resolved]
  - Hypothyroidism [Not Recovered/Not Resolved]
  - Anxiety [Not Recovered/Not Resolved]
  - Blood calcium decreased [Not Recovered/Not Resolved]
  - Vitamin B12 deficiency [Not Recovered/Not Resolved]
  - Bronchitis [Recovered/Resolved]
  - Blood pressure inadequately controlled [Not Recovered/Not Resolved]
